FAERS Safety Report 7507346-9 (Version None)
Quarter: 2011Q2

REPORT INFORMATION
  Report Type: 
  Country: None (occurrence: None)
  Receive Date: 20110526
  Receipt Date: 20110517
  Transmission Date: 20111010
  Serious: Yes (Hospitalization, Other)
  Sender: FDA-Public Use
  Company Number: US-BAXTER-2011BH016256

PATIENT
  Age: 78 Year
  Sex: Female

DRUGS (1)
  1. DIANEAL [Suspect]
     Indication: PERITONEAL DIALYSIS
     Route: 033

REACTIONS (6)
  - ASTHENIA [None]
  - URINARY TRACT INFECTION [None]
  - DEHYDRATION [None]
  - HIATUS HERNIA [None]
  - NAUSEA [None]
  - DYSPHAGIA [None]
